FAERS Safety Report 15577466 (Version 2)
Quarter: 2018Q4

REPORT INFORMATION
  Report Type: Spontaneous
  Country: US (occurrence: US)
  Receive Date: 20181102
  Receipt Date: 20181219
  Transmission Date: 20190205
  Serious: Yes (Other)
  Sender: FDA-Public Use
  Company Number: US-PFIZER INC-2018448337

PATIENT
  Age: 38 Year
  Sex: Female

DRUGS (4)
  1. FLEXERIL [CEFIXIME] [Concomitant]
     Indication: TEMPOROMANDIBULAR JOINT SYNDROME
  2. FLEXERIL [CEFIXIME] [Concomitant]
     Indication: MUSCLE SPASMS
  3. LEXAPRO [Concomitant]
     Active Substance: ESCITALOPRAM OXALATE
  4. XANAX [Suspect]
     Active Substance: ALPRAZOLAM
     Indication: CEREBROVASCULAR ACCIDENT
     Dosage: UNK, 1X/DAY (10 ONE X PER DAY)
     Dates: start: 2008

REACTIONS (5)
  - Back pain [Not Recovered/Not Resolved]
  - Intervertebral disc protrusion [Unknown]
  - Product use in unapproved indication [Unknown]
  - Intentional product use issue [Unknown]
  - Loss of consciousness [Recovered/Resolved]

NARRATIVE: CASE EVENT DATE: 2008
